FAERS Safety Report 15439916 (Version 2)
Quarter: 2018Q4

REPORT INFORMATION
  Report Type: Spontaneous
  Country: DE (occurrence: DE)
  Receive Date: 20180928
  Receipt Date: 20181004
  Transmission Date: 20190204
  Serious: Yes (Death, Hospitalization, Other)
  Sender: FDA-Public Use
  Company Number: DE-PFIZER INC-2018390394

PATIENT
  Age: 59 Year
  Sex: Male

DRUGS (7)
  1. AMIODARONE HCL [Suspect]
     Active Substance: AMIODARONE HYDROCHLORIDE
     Indication: REPERFUSION ARRHYTHMIA
     Dosage: UNK
     Route: 065
  2. ACETYLSALICYLIC ACID [Suspect]
     Active Substance: ASPIRIN
     Indication: MYOCARDIAL INFARCTION
     Dosage: UNK
     Route: 065
  3. HYDROCORTISONE. [Concomitant]
     Active Substance: HYDROCORTISONE
     Dosage: UNK (REPLACEMENT, INCREASED DUE TO THE CLINICAL SITUATION)
  4. ENOXAPARIN SODIUM. [Suspect]
     Active Substance: ENOXAPARIN SODIUM
     Indication: MYOCARDIAL INFARCTION
     Dosage: UNK
     Route: 065
  5. ABCIXIMAB [Suspect]
     Active Substance: ABCIXIMAB
     Dosage: UNK (CONTINUED FOR ANOTHER 12 HOURS)
     Route: 065
  6. HEPARIN [Suspect]
     Active Substance: HEPARIN SODIUM
     Indication: MYOCARDIAL INFARCTION
     Dosage: UNK (LOW-MOLECULAR-MOLECULAR WEIGHT)
     Route: 065
  7. CLOPIDOGREL SULFATE [Suspect]
     Active Substance: CLOPIDOGREL BISULFATE
     Indication: MYOCARDIAL INFARCTION
     Dosage: UNK
     Route: 065

REACTIONS (12)
  - Retinal artery occlusion [Fatal]
  - Pituitary tumour benign [Fatal]
  - Hemiparesis [Fatal]
  - Coma [Fatal]
  - Cerebral infarction [Fatal]
  - Brain oedema [Fatal]
  - Amaurosis [Fatal]
  - Pituitary haemorrhage [Fatal]
  - Disease progression [Fatal]
  - Headache [Fatal]
  - Respiratory depression [Fatal]
  - Condition aggravated [Fatal]
